FAERS Safety Report 9913309 (Version 1)
Quarter: 2014Q1

REPORT INFORMATION
  Report Type: Spontaneous
  Country: US (occurrence: None)
  Receive Date: 20140219
  Receipt Date: 20140219
  Transmission Date: 20141002
  Serious: Yes (Hospitalization)
  Sender: FDA-Public Use
  Company Number: None

PATIENT
  Age: 80 Year
  Sex: Female
  Weight: 64.41 kg

DRUGS (4)
  1. INDOMETHACIN [Suspect]
     Indication: GOUT
     Dosage: 1 CA TID ORAL
     Route: 048
     Dates: start: 20131016, end: 20140131
  2. DYAZIDE [Concomitant]
  3. LOSARTAN [Concomitant]
  4. CREATININE [Concomitant]

REACTIONS (1)
  - Blood potassium increased [None]
